FAERS Safety Report 8575282-5 (Version None)
Quarter: 2012Q3

REPORT INFORMATION
  Report Type: 
  Country: None (occurrence: None)
  Receive Date: 20120807
  Receipt Date: 20120730
  Transmission Date: 20120928
  Serious: Yes (Hospitalization)
  Sender: FDA-Public Use
  Company Number: FR-UCBSA-062945

PATIENT
  Age: 63 Year
  Sex: Female
  Weight: 45 kg

DRUGS (3)
  1. METHOTREXATE SODIUM [Concomitant]
     Indication: RHEUMATOID ARTHRITIS
     Route: 058
     Dates: start: 20060101
  2. PREDNISONE TAB [Concomitant]
     Indication: RHEUMATOID ARTHRITIS
     Dosage: 5 MG
     Route: 048
  3. CIMZIA [Suspect]
     Indication: RHEUMATOID ARTHRITIS
     Dosage: 400 MG EVERY TWO WEEKS THEN 200 MG EVERY TWO WEEKS
     Route: 058
     Dates: start: 20120101

REACTIONS (2)
  - HAEMOGLOBIN DECREASED [None]
  - FRACTURE [None]
